FAERS Safety Report 8334177 (Version 2)
Quarter: 2012Q4

REPORT INFORMATION
  Report Type: 
  Country: JP (occurrence: JP)
  Receive Date: 20120112
  Receipt Date: 20120904
  Transmission Date: 20130627
  Serious: Yes (Other)
  Sender: FDA-Public Use
  Company Number: JP-ROCHE-1028734

PATIENT
  Age: 64 Year
  Sex: Male
  Weight: 51 kg

DRUGS (4)
  1. AVASTIN [Suspect]
     Indication: LUNG ADENOCARCINOMA METASTATIC
     Route: 041
     Dates: start: 20110623, end: 20111220
  2. PARAPLATIN [Concomitant]
     Indication: LUNG ADENOCARCINOMA METASTATIC
     Route: 041
     Dates: end: 20111220
  3. ALIMTA [Concomitant]
     Indication: LUNG ADENOCARCINOMA METASTATIC
     Route: 041
     Dates: end: 20111220
  4. VOLTAREN SR [Concomitant]
     Dosage: Dosage is uncertain.
     Route: 048

REACTIONS (2)
  - Upper gastrointestinal haemorrhage [Recovered/Resolved]
  - Anaemia [Recovering/Resolving]
